FAERS Safety Report 21332867 (Version 1)
Quarter: 2022Q3

REPORT INFORMATION
  Report Type: Spontaneous
  Country: US (occurrence: None)
  Receive Date: 20220914
  Receipt Date: 20220914
  Transmission Date: 20221027
  Serious: Yes (Hospitalization)
  Sender: FDA-Public Use
  Company Number: 2022A310013

PATIENT
  Age: 918 Month
  Sex: Female
  Weight: 54 kg

DRUGS (2)
  1. SYMBICORT [Suspect]
     Active Substance: BUDESONIDE\FORMOTEROL FUMARATE DIHYDRATE
     Indication: Chronic obstructive pulmonary disease
     Dosage: 160/4.5 MCG, 120 ACTUATIONS, TWO PUFFS TWICE A DAY, BY INHALATION
     Route: 055
     Dates: start: 2015
  2. SYMBICORT [Suspect]
     Active Substance: BUDESONIDE\FORMOTEROL FUMARATE DIHYDRATE
     Indication: Chronic obstructive pulmonary disease
     Dosage: 160/4.5 MCG, 120 ACTUATIONS, TWO PUFFS TWICE A DAY, BY INHALATION
     Route: 055
     Dates: start: 20220829

REACTIONS (8)
  - Dyspnoea [Not Recovered/Not Resolved]
  - Myocardial infarction [Not Recovered/Not Resolved]
  - Panic attack [Not Recovered/Not Resolved]
  - Cardiac failure congestive [Not Recovered/Not Resolved]
  - Tachycardia [Not Recovered/Not Resolved]
  - Chronic obstructive pulmonary disease [Unknown]
  - Bone disorder [Unknown]
  - Device issue [Unknown]

NARRATIVE: CASE EVENT DATE: 20220101
